FAERS Safety Report 19657880 (Version 1)
Quarter: 2021Q3

REPORT INFORMATION
  Report Type: Report from Study
  Country: CA (occurrence: CA)
  Receive Date: 20210804
  Receipt Date: 20210804
  Transmission Date: 20211014
  Serious: Yes (Other)
  Sender: FDA-Public Use
  Company Number: CA-SA-2021SA147785

PATIENT
  Sex: Male
  Weight: 94.9 kg

DRUGS (110)
  1. ANTI?THYMOCYTE GLOBULIN (RABBIT) NOS [Suspect]
     Active Substance: LAPINE T-LYMPHOCYTE IMMUNE GLOBULIN
     Dosage: 210 MG, 1X
     Dates: start: 20210407, end: 20210407
  2. NOVORAPID [Concomitant]
     Active Substance: INSULIN ASPART
     Indication: HYPERGLYCAEMIA
     Dosage: LOW DOSE SLIDING SCALE
     Dates: start: 20210405, end: 20210412
  3. ZOPICLONE [Concomitant]
     Active Substance: ZOPICLONE
     Indication: INSOMNIA
     Dosage: UNK UNK, 3.75?7.5 MG, HS PRN
     Route: 048
     Dates: start: 20210405, end: 20210504
  4. FUROSEMIDE. [Concomitant]
     Active Substance: FUROSEMIDE
     Indication: OEDEMA PERIPHERAL
     Dosage: 40 MG, 1X
     Route: 042
     Dates: start: 20210417, end: 20210417
  5. VANCOMYCIN [Concomitant]
     Active Substance: VANCOMYCIN
     Indication: CLOSTRIDIUM DIFFICILE COLITIS
     Dosage: 125 MG, QID
     Route: 048
     Dates: start: 20210408, end: 20210423
  6. VITAMIN K [Concomitant]
     Active Substance: PHYTONADIONE
     Indication: INTERNATIONAL NORMALISED RATIO INCREASED
     Dosage: 10 MG
     Route: 048
     Dates: start: 20210411, end: 20210411
  7. RED BLOOD CELLS [Concomitant]
     Active Substance: HUMAN RED BLOOD CELL
     Dosage: 1 DF (BAG) IRRADIATED
     Dates: start: 20210421, end: 20210421
  8. ALLOPURINOL. [Concomitant]
     Active Substance: ALLOPURINOL
     Indication: PROPHYLAXIS
     Dosage: 300 MG, QD X 5 DAYS
     Route: 048
     Dates: start: 20210331, end: 20210404
  9. ACETAMINOPHEN. [Concomitant]
     Active Substance: ACETAMINOPHEN
     Dosage: 650 MG, 1X
     Route: 048
     Dates: start: 20210408, end: 20210408
  10. AMLODIPINE [Concomitant]
     Active Substance: AMLODIPINE BESYLATE
     Dosage: 5 MG, 1X
     Route: 048
     Dates: start: 20210419, end: 20210419
  11. AMLODIPINE [Concomitant]
     Active Substance: AMLODIPINE BESYLATE
     Dosage: 10 MG, QD
     Route: 048
     Dates: start: 20210419
  12. ANTI?THYMOCYTE GLOBULIN (RABBIT) NOS [Suspect]
     Active Substance: LAPINE T-LYMPHOCYTE IMMUNE GLOBULIN
     Indication: PROPHYLAXIS
     Dosage: 50 MG, 1X
     Dates: start: 20210406, end: 20210406
  13. VITAMIN B12 [Concomitant]
     Active Substance: CYANOCOBALAMIN
     Indication: VITAMIN B12 DEFICIENCY
     Dosage: UNK
     Route: 060
     Dates: start: 2020
  14. POTASSIUM CHLORIDE. [Concomitant]
     Active Substance: POTASSIUM CHLORIDE
     Indication: HYPOKALAEMIA
     Dosage: 30 MEQ IN 250 ML NORMAL SALINE (NS), PRN (OVER 3 FOR POTASSIUM 3?3.4 MMOL/L)
     Route: 042
     Dates: start: 20210418
  15. MAGNESIUM SULFATE. [Concomitant]
     Active Substance: MAGNESIUM SULFATE
     Dosage: 3 G
     Route: 042
     Dates: start: 20210503, end: 20210503
  16. VORICONAZOLE. [Concomitant]
     Active Substance: VORICONAZOLE
     Indication: ANTIFUNGAL PROPHYLAXIS
     Dosage: 200 MG, BID
     Route: 048
     Dates: start: 20210409, end: 20210411
  17. ONDANSETRON [Concomitant]
     Active Substance: ONDANSETRON
     Indication: PROPHYLAXIS OF NAUSEA AND VOMITING
     Dosage: 8 MG, Q12H X 14 DOSES ORAL/IV
     Dates: start: 20210401, end: 20210407
  18. HYDROMORPHONE [Concomitant]
     Active Substance: HYDROMORPHONE
     Dosage: 0.2 MG, Q5MN PATIENT?CONTROLLED ANALGESIA (PCA)
     Dates: start: 20210418, end: 20210503
  19. ALMAGEL [ALUMINIUM HYDROXIDE;MAGNESIUM HYDROXIDE] [Concomitant]
     Active Substance: ALUMINUM HYDROXIDE\MAGNESIUM HYDROXIDE
     Indication: DYSPEPSIA
     Dosage: 15 ML, PRN, Q3?4 H
     Route: 048
     Dates: start: 20210419, end: 20210419
  20. HYDROCORTISONE. [Concomitant]
     Active Substance: HYDROCORTISONE
     Indication: RASH
     Dosage: 1 %, BID X 7 D
     Route: 061
     Dates: start: 20210423, end: 20210430
  21. FUROSEMIDE. [Concomitant]
     Active Substance: FUROSEMIDE
     Dosage: 40 MG
     Route: 042
     Dates: start: 20210503, end: 20210503
  22. NORMAL SALINE [Concomitant]
     Active Substance: SODIUM CHLORIDE
     Indication: INFUSION RELATED REACTION
     Dosage: 500 ML, 1X OVER 1 HOUR
     Route: 042
     Dates: start: 20210408, end: 20210408
  23. ACETAMINOPHEN. [Concomitant]
     Active Substance: ACETAMINOPHEN
     Indication: HEADACHE
     Dosage: 975 MG, 1X
     Route: 048
     Dates: start: 20210408, end: 20210408
  24. CODEINE [Concomitant]
     Active Substance: CODEINE
     Indication: HEADACHE
     Dosage: 30 MG, 1X
     Route: 048
     Dates: start: 20210408, end: 20210408
  25. CETIRIZINE [Concomitant]
     Active Substance: CETIRIZINE HYDROCHLORIDE
     Indication: RASH
     Dosage: 10 MG, 1X
     Route: 048
     Dates: start: 20210412, end: 20210412
  26. RED BLOOD CELLS [Concomitant]
     Active Substance: HUMAN RED BLOOD CELL
     Dosage: 1 DF (BAG), IRRADIATED
     Dates: start: 20210425, end: 20210425
  27. FUROSEMIDE. [Concomitant]
     Active Substance: FUROSEMIDE
     Indication: OEDEMA PERIPHERAL
     Dosage: 20 MG, 1X WEIGHT INCREASED 1.9 KG / 24 HOURS
     Route: 042
     Dates: start: 20210412, end: 20210412
  28. ONDANSETRON [Concomitant]
     Active Substance: ONDANSETRON
     Dosage: 8 MG, PRN PO/IV Q12H
     Dates: start: 20210408, end: 20210501
  29. DEXAMETHASONE. [Concomitant]
     Active Substance: DEXAMETHASONE
     Indication: PROPHYLAXIS OF NAUSEA AND VOMITING
     Dosage: 10 MG, QD X 6 DOSES
     Route: 042
     Dates: start: 20210401, end: 20210406
  30. DIMENHYDRINATE. [Concomitant]
     Active Substance: DIMENHYDRINATE
     Indication: PROPHYLAXIS OF NAUSEA AND VOMITING
     Dosage: 25?50 MG, PRN Q3H PO/IV
     Dates: start: 20210402, end: 20210426
  31. METHOTREXATE. [Concomitant]
     Active Substance: METHOTREXATE
     Indication: PROPHYLAXIS AGAINST GRAFT VERSUS HOST DISEASE
     Dosage: 30 MG, 1X IN 50 ML NS
     Route: 042
     Dates: start: 20210409, end: 20210409
  32. METHOTREXATE. [Concomitant]
     Active Substance: METHOTREXATE
     Dosage: 20 MG IN 50 ML NS, OVER 15 MINS ON D+3 (APR 11), D+6 (APR14)
     Route: 042
     Dates: start: 20210411, end: 20210414
  33. ACYCLOVIR [ACICLOVIR] [Concomitant]
     Active Substance: ACYCLOVIR
     Indication: ANTIVIRAL PROPHYLAXIS
     Dosage: 435 MG, Q12H
     Route: 042
     Dates: start: 20210407, end: 20210407
  34. CYCLOSPORINE. [Concomitant]
     Active Substance: CYCLOSPORINE
     Dosage: 100 MG, BID
     Route: 048
     Dates: start: 20210608, end: 2021
  35. NATURAL TEARS [Concomitant]
     Active Substance: POLYVINYL ALCOHOL\POVIDONE
     Indication: DRY EYE
     Dosage: UNK UNK, PRN
     Dates: start: 20210405, end: 20210502
  36. MAGNESIUM SULFATE. [Concomitant]
     Active Substance: MAGNESIUM SULFATE
     Indication: HYPOMAGNESAEMIA
     Dosage: 5 G, PRN  IV IN 250 ML NS
     Route: 042
     Dates: start: 20210412
  37. CODEINE [Concomitant]
     Active Substance: CODEINE
     Dosage: 15?30 MG, Q3?4 H PRN
     Route: 048
     Dates: start: 20210409, end: 20210414
  38. POSACONAZOLE [Concomitant]
     Active Substance: POSACONAZOLE
     Dosage: 300 MG, QD
     Route: 048
     Dates: start: 20210412, end: 20210415
  39. POSACONAZOLE [Concomitant]
     Active Substance: POSACONAZOLE
     Dosage: 300 MG, QD
     Route: 048
     Dates: start: 20210505
  40. PLATELETS [Concomitant]
     Active Substance: HUMAN PLATELET, ALLOGENIC
     Dosage: 1 DF UNIT (BAG), 1X
     Dates: start: 20210420, end: 20210420
  41. LORAZEPAM. [Concomitant]
     Active Substance: LORAZEPAM
     Indication: SEIZURE PROPHYLAXIS
     Dosage: 1 MG, QD
     Route: 048
     Dates: start: 20210331, end: 20210405
  42. FUROSEMIDE. [Concomitant]
     Active Substance: FUROSEMIDE
     Indication: OEDEMA PERIPHERAL
     Dosage: 40 MG
     Route: 042
     Dates: start: 20210427, end: 20210427
  43. METHYLPREDNISOLONE SODIUM SUCCINATE. [Concomitant]
     Active Substance: METHYLPREDNISOLONE SODIUM SUCCINATE
     Indication: PROPHYLAXIS
     Dosage: 40 MG, Q12H X 2 DOSES
     Route: 042
     Dates: start: 20210409, end: 20210409
  44. CYCLOSPORINE. [Concomitant]
     Active Substance: CYCLOSPORINE
     Dosage: 200 MG, Q12H
     Route: 042
     Dates: start: 20210412, end: 20210414
  45. CYCLOSPORINE. [Concomitant]
     Active Substance: CYCLOSPORINE
     Dosage: 150 MG, BID
     Route: 048
     Dates: start: 20210526, end: 20210608
  46. VALACYCLOVIR [Concomitant]
     Active Substance: VALACYCLOVIR HYDROCHLORIDE
     Indication: ANTIVIRAL PROPHYLAXIS
     Dosage: 500 MG, BID (STOPPED TAKING ON OWN)
     Route: 048
     Dates: start: 20201215, end: 20210310
  47. VALACYCLOVIR [Concomitant]
     Active Substance: VALACYCLOVIR HYDROCHLORIDE
     Dosage: 500 MG, BID
     Route: 048
     Dates: start: 20210409, end: 20210410
  48. MEPERIDINE [PETHIDINE] [Concomitant]
     Active Substance: MEPERIDINE
     Indication: INFUSION RELATED REACTION
     Dosage: 25 MG, 1X
     Route: 042
     Dates: start: 20210408, end: 20210408
  49. NORMAL SALINE [Concomitant]
     Active Substance: SODIUM CHLORIDE
     Dosage: 1 L, QD OVER 2?3 H DAILY
     Route: 040
     Dates: start: 20210413, end: 20210422
  50. CETIRIZINE [Concomitant]
     Active Substance: CETIRIZINE HYDROCHLORIDE
     Dosage: 10 MG, 1X
     Route: 048
     Dates: start: 20210422, end: 20210422
  51. CETIRIZINE [Concomitant]
     Active Substance: CETIRIZINE HYDROCHLORIDE
     Dosage: 10 MG, QD
     Route: 048
     Dates: start: 20210424
  52. PLATELETS [Concomitant]
     Active Substance: HUMAN PLATELET, ALLOGENIC
     Indication: THROMBOCYTOPENIA
     Dosage: 1 DF UNIT (BAG)
     Dates: start: 20210413, end: 20210413
  53. RED BLOOD CELLS [Concomitant]
     Active Substance: HUMAN RED BLOOD CELL
     Indication: ANAEMIA
     Dosage: 1 DF UNIT (BAG), OVER 2?3 HOURS
     Dates: start: 20210409, end: 20210410
  54. RED BLOOD CELLS [Concomitant]
     Active Substance: HUMAN RED BLOOD CELL
     Dosage: 1 DF UNIT (BAG)
     Dates: start: 20210411, end: 20210411
  55. RED BLOOD CELLS [Concomitant]
     Active Substance: HUMAN RED BLOOD CELL
     Dosage: UNK
     Dates: start: 20210429, end: 20210429
  56. FUROSEMIDE. [Concomitant]
     Active Substance: FUROSEMIDE
     Dosage: 20 MG, PRE AND POST PACKED RED BLOOD CELLS
     Dates: start: 20210425, end: 20210425
  57. METOCLOPRAMIDE. [Concomitant]
     Active Substance: METOCLOPRAMIDE
     Indication: PROPHYLAXIS OF NAUSEA AND VOMITING
     Dosage: 10?20 MG, PRN Q3H PO/IV
     Dates: start: 20210405, end: 20210425
  58. DIPHENHYDRAMINE. [Concomitant]
     Active Substance: DIPHENHYDRAMINE
     Indication: PREMEDICATION
     Dosage: 25 MG, 1X
     Route: 042
     Dates: start: 20210408, end: 20210408
  59. DIPHENHYDRAMINE. [Concomitant]
     Active Substance: DIPHENHYDRAMINE
     Dosage: 50 MG
     Route: 048
     Dates: start: 20210507, end: 20210508
  60. ONDANSETRON [Concomitant]
     Active Substance: ONDANSETRON
     Indication: PREMEDICATION
     Dosage: 8 MG, 1X
     Route: 042
     Dates: start: 20210408, end: 20210408
  61. CASPOFUNGIN [Concomitant]
     Active Substance: CASPOFUNGIN
     Dosage: 50 MG, QD
     Route: 042
     Dates: start: 20210417, end: 20210503
  62. PIPERACILLIN AND TAZOBACTAM [Concomitant]
     Active Substance: PIPERACILLIN SODIUM\TAZOBACTAM SODIUM
     Indication: FEBRILE NEUTROPENIA
     Dosage: 3.375 G, Q6H
     Route: 042
     Dates: start: 20210407, end: 20210503
  63. HYDROMORPHONE [Concomitant]
     Active Substance: HYDROMORPHONE
     Indication: MUCOSAL INFLAMMATION
     Dosage: 1?2 MG OR 2?3 MG, EVERY 3 HOURS, SUBCUTANEOUS OR ORAL PRN
     Dates: start: 20210416, end: 20210418
  64. VANCOMYCIN [Concomitant]
     Active Substance: VANCOMYCIN
     Indication: FEBRILE NEUTROPENIA
     Dosage: 1500 MG, Q12H
     Route: 042
     Dates: start: 20210419, end: 20210420
  65. ACYCLOVIR [ACICLOVIR] [Concomitant]
     Active Substance: ACYCLOVIR
     Dosage: 435 MG, Q12H
     Route: 042
     Dates: start: 20210409, end: 20210409
  66. CYCLOSPORINE. [Concomitant]
     Active Substance: CYCLOSPORINE
     Dosage: 225 MG, Q12H
     Route: 042
     Dates: start: 20210414, end: 20210421
  67. CYCLOSPORINE. [Concomitant]
     Active Substance: CYCLOSPORINE
     Dosage: 250 MG, Q12H
     Route: 042
     Dates: start: 20210421, end: 20210503
  68. CYCLOSPORINE. [Concomitant]
     Active Substance: CYCLOSPORINE
     Dosage: 50 MG, BID
     Route: 048
     Dates: start: 2021, end: 20210715
  69. VALACYCLOVIR [Concomitant]
     Active Substance: VALACYCLOVIR HYDROCHLORIDE
     Dosage: 500 MG, BID (INSTRUCTED TO RESTART)
     Route: 048
     Dates: start: 20210324, end: 20210407
  70. POSACONAZOLE [Concomitant]
     Active Substance: POSACONAZOLE
     Indication: ANTIFUNGAL PROPHYLAXIS
     Dosage: 300 MG, BID X 2 DOSES
     Route: 048
     Dates: start: 20210411, end: 20210411
  71. POSACONAZOLE [Concomitant]
     Active Substance: POSACONAZOLE
     Dosage: 300 MG, BID
     Route: 048
     Dates: start: 20210504, end: 20210504
  72. PLATELETS [Concomitant]
     Active Substance: HUMAN PLATELET, ALLOGENIC
     Dosage: 1 UNIT APHERESED
     Dates: start: 20210418, end: 20210418
  73. PLATELETS [Concomitant]
     Active Substance: HUMAN PLATELET, ALLOGENIC
     Dosage: 1 DF (BAG) IRRADIATED
     Dates: start: 20210425, end: 20210425
  74. PLATELETS [Concomitant]
     Active Substance: HUMAN PLATELET, ALLOGENIC
     Dosage: 1 DF (BAG)
     Dates: start: 20210426, end: 20210426
  75. PLATELETS [Concomitant]
     Active Substance: HUMAN PLATELET, ALLOGENIC
     Dosage: UNK
     Dates: start: 20210501, end: 20210501
  76. RED BLOOD CELLS [Concomitant]
     Active Substance: HUMAN RED BLOOD CELL
     Dosage: 1 DF, 1X
     Dates: start: 20210418, end: 20210418
  77. FUROSEMIDE. [Concomitant]
     Active Substance: FUROSEMIDE
     Dosage: 20 MG
     Route: 042
     Dates: start: 20210424, end: 20210424
  78. LORAZEPAM. [Concomitant]
     Active Substance: LORAZEPAM
     Indication: ANXIETY
     Dosage: 1 MG PO/SL Q6H PRN
     Dates: start: 20210410, end: 20210505
  79. ACETAMINOPHEN. [Concomitant]
     Active Substance: ACETAMINOPHEN
     Indication: PREMEDICATION
     Dosage: 975 MG, REPEAT Q4H DURING ATG UNTIL COMPLETE
     Route: 048
     Dates: start: 20210406, end: 20210409
  80. URSODIOL. [Concomitant]
     Active Substance: URSODIOL
     Indication: VASCULAR DISORDER PROPHYLAXIS
     Dosage: 500 MG, BID
     Route: 048
     Dates: start: 20210331
  81. METHYLPREDNISOLONE. [Concomitant]
     Active Substance: METHYLPREDNISOLONE
     Indication: ACUTE GRAFT VERSUS HOST DISEASE
     Dosage: 110 MG, QD
     Route: 042
     Dates: start: 20210424, end: 20210428
  82. CYCLOSPORINE. [Concomitant]
     Active Substance: CYCLOSPORINE
     Indication: IMMUNOSUPPRESSION
     Dosage: 550 MG, Q12H
     Route: 048
     Dates: start: 20210406, end: 20210407
  83. CYCLOSPORINE. [Concomitant]
     Active Substance: CYCLOSPORINE
     Dosage: 55 MG, Q12H
     Route: 042
     Dates: start: 20210411, end: 20210412
  84. ANTI?THYMOCYTE GLOBULIN (RABBIT) NOS [Suspect]
     Active Substance: LAPINE T-LYMPHOCYTE IMMUNE GLOBULIN
     Dosage: 210 MG, 1X
     Dates: start: 20210409, end: 20210409
  85. TUMS [Concomitant]
     Active Substance: CALCIUM CARBONATE
     Indication: HYPOCALCAEMIA
     Dosage: UNK UNK, BID
     Route: 048
     Dates: start: 202101
  86. FUROSEMIDE. [Concomitant]
     Active Substance: FUROSEMIDE
     Indication: FLUID OVERLOAD
     Dosage: 20 MG, PRN IV DIRECT (IF WEIGHT INCREASED } 2KG/24 HOURS_
     Route: 042
     Dates: start: 20210408, end: 202104
  87. VANCOMYCIN [Concomitant]
     Active Substance: VANCOMYCIN
     Dosage: 1500 MG, Q8H
     Route: 042
     Dates: start: 20210408, end: 20210419
  88. NORMAL SALINE [Concomitant]
     Active Substance: SODIUM CHLORIDE
     Dosage: 0.9%+40MEQ+4G
     Dates: start: 20210508, end: 20210510
  89. NORMAL SALINE [Concomitant]
     Active Substance: SODIUM CHLORIDE
     Dosage: 75 ML, QH
     Route: 042
     Dates: start: 20210410, end: 20210412
  90. FUROSEMIDE. [Concomitant]
     Active Substance: FUROSEMIDE
     Indication: FLUID RETENTION
     Dosage: 20 MG, 1X
     Route: 042
     Dates: start: 20210410, end: 20210410
  91. FUROSEMIDE. [Concomitant]
     Active Substance: FUROSEMIDE
     Indication: PROPHYLAXIS
     Dosage: 20 MG, IV DIRECT
     Route: 042
     Dates: start: 20210405, end: 20210406
  92. LORAZEPAM. [Concomitant]
     Active Substance: LORAZEPAM
     Indication: PREMEDICATION
     Dosage: 1 MG, 1X
     Route: 060
     Dates: start: 20210408, end: 20210408
  93. METHOTREXATE. [Concomitant]
     Active Substance: METHOTREXATE
     Dosage: 10 MG, IN 50 ML NS DAY + 11
     Route: 042
     Dates: start: 20210419, end: 20210419
  94. VANCOMYCIN [Concomitant]
     Active Substance: VANCOMYCIN
     Dosage: 2000 MG, 1X
     Route: 042
     Dates: start: 20210408, end: 20210408
  95. NORMAL SALINE [Concomitant]
     Active Substance: SODIUM CHLORIDE
     Indication: DEHYDRATION
     Dosage: 75 ML, QH
     Dates: start: 20210408, end: 20210410
  96. NORMAL SALINE [Concomitant]
     Active Substance: SODIUM CHLORIDE
     Dosage: 1 L, OVER 2?3 H
     Route: 040
     Dates: start: 20210409, end: 20210409
  97. PLATELETS [Concomitant]
     Active Substance: HUMAN PLATELET, ALLOGENIC
     Dosage: 1 DF POOLED
     Dates: start: 20210422, end: 20210422
  98. PLATELETS [Concomitant]
     Active Substance: HUMAN PLATELET, ALLOGENIC
     Dosage: 1 DF (BAG) APHERESED
     Dates: start: 20210424, end: 20210424
  99. RED BLOOD CELLS [Concomitant]
     Active Substance: HUMAN RED BLOOD CELL
     Dosage: 1 DF (BAG) IRRADIATED
     Dates: start: 20210423, end: 20210423
  100. ONDANSETRON [Concomitant]
     Active Substance: ONDANSETRON
     Dosage: 8 MG IV PRN
     Route: 042
     Dates: start: 20210507, end: 20210507
  101. DIMENHYDRINATE. [Concomitant]
     Active Substance: DIMENHYDRINATE
     Indication: PREMEDICATION
     Dosage: 50 MG, PO/IV, PRIOR TO EACH DOSE ATG, REPEAT Q4H UNTIL ATG COMPLETE
     Dates: start: 20210406, end: 20210409
  102. METHYLPREDNISOLONE SODIUM SUCCINATE. [Concomitant]
     Active Substance: METHYLPREDNISOLONE SODIUM SUCCINATE
     Indication: PREMEDICATION
     Dosage: 40 MG, Q12H X 4 DOSES
     Route: 042
     Dates: start: 20210406, end: 20210407
  103. CASPOFUNGIN [Concomitant]
     Active Substance: CASPOFUNGIN
     Indication: ANTIFUNGAL PROPHYLAXIS
     Dosage: 70 MG, 1X
     Route: 042
     Dates: start: 20210416, end: 20210416
  104. AMLODIPINE [Concomitant]
     Active Substance: AMLODIPINE BESYLATE
     Indication: HYPERTENSION
     Dosage: 5 MG, QD
     Route: 048
     Dates: start: 20210418, end: 20210419
  105. PANTOPRAZOLE [Concomitant]
     Active Substance: PANTOPRAZOLE
     Indication: DYSPEPSIA
     Dosage: 40 MG, BID
     Route: 042
     Dates: start: 20210419, end: 20210503
  106. ACYCLOVIR [ACICLOVIR] [Concomitant]
     Active Substance: ACYCLOVIR
     Dosage: 435 MG, Q12H
     Route: 042
     Dates: start: 20210410
  107. PHYTONADIONE. [Concomitant]
     Active Substance: PHYTONADIONE
     Indication: INTERNATIONAL NORMALISED RATIO INCREASED
     Dosage: UNK UNK, QD X 3 D
     Route: 048
     Dates: start: 20210423, end: 20210425
  108. CYCLOSPORINE. [Concomitant]
     Active Substance: CYCLOSPORINE
     Dosage: 183 MG, Q12H
     Route: 042
     Dates: start: 20210407, end: 20210408
  109. CYCLOSPORINE. [Concomitant]
     Active Substance: CYCLOSPORINE
     Dosage: 110 MG, Q12H
     Route: 042
     Dates: start: 20210408, end: 20210411
  110. CYCLOSPORINE. [Concomitant]
     Active Substance: CYCLOSPORINE
     Dosage: 200 MG, BID
     Route: 048
     Dates: start: 20210503, end: 20210526

REACTIONS (1)
  - Acute graft versus host disease [Recovered/Resolved]

NARRATIVE: CASE EVENT DATE: 20210423
